FAERS Safety Report 5803027-8 (Version None)
Quarter: 2008Q2

REPORT INFORMATION
  Report Type: 
  Country: None (occurrence: None)
  Receive Date: 20080626
  Receipt Date: 20080325
  Transmission Date: 20081010
  Serious: Yes (Life-Threatening, Hospitalization)
  Sender: FDA-Public Use
  Company Number: A03200801242

PATIENT
  Age: 33 Year
  Sex: Female

DRUGS (7)
  1. AMBIEN CR [Suspect]
     Indication: INSOMNIA
     Dosage: 2 DF ONCE - ORAL
     Route: 048
     Dates: start: 20080215, end: 20080215
  2. AMBIEN CR [Suspect]
     Indication: INSOMNIA
     Dosage: 1 DF QD - ORAL
     Route: 048
     Dates: start: 20060608, end: 20080101
  3. ATIVAN [Suspect]
     Dosage: 20 MG ONCE - ORAL
     Route: 048
     Dates: start: 20080215, end: 20080215
  4. ATIVAN [Suspect]
     Dosage: ORAL
     Route: 048
  5. UNKNOWN DRUG - 1 DF [Suspect]
     Dosage: 30 DF ONCE
  6. ROPINIROLE HCL [Concomitant]
  7. ACETAMINOPHEN AND HYDROCODONE BITARTRATE [Concomitant]

REACTIONS (6)
  - ABNORMAL BEHAVIOUR [None]
  - AMNESIA [None]
  - DRUG INTERACTION [None]
  - MULTIPLE DRUG OVERDOSE ACCIDENTAL [None]
  - RESPIRATORY ARREST [None]
  - THERAPEUTIC AGENT TOXICITY [None]
